FAERS Safety Report 8584868-3 (Version None)
Quarter: 2012Q2

REPORT INFORMATION
  Report Type: 
  Country: None (occurrence: None)
  Receive Date: 20120423
  Receipt Date: 20091117
  Transmission Date: 20120825
  Serious: Yes (Hospitalization)
  Sender: FDA-Public Use
  Company Number: PHEH2009US14309

PATIENT
  Age: 75 Year
  Sex: Male

DRUGS (9)
  1. TOPROL-XL [Concomitant]
  2. EXJADE [Suspect]
     Indication: MYELODYSPLASTIC SYNDROME
     Dosage: 500 MG DAILY, ORAL
     Route: 048
     Dates: start: 20090901
  3. EXJADE [Suspect]
     Indication: IRON OVERLOAD
     Dosage: 500 MG DAILY, ORAL
     Route: 048
     Dates: start: 20090901
  4. TRANSFUSIONS (NO INGREDIENTS/SUBSTANCES) [Concomitant]
  5. NEUPOGEN [Concomitant]
  6. EPOGEN [Concomitant]
  7. FLOMAX [Concomitant]
  8. PRILOSEC [Concomitant]
  9. FINASTERIDE [Concomitant]

REACTIONS (1)
  - INFECTION [None]
